FAERS Safety Report 5318978-0 (Version None)
Quarter: 2007Q2

REPORT INFORMATION
  Report Type: 
  Country: None (occurrence: None)
  Receive Date: 20070501
  Receipt Date: 20070424
  Transmission Date: 20071010
  Serious: Yes (Other)
  Sender: FDA-Public Use
  Company Number: 163-21880-06120847

PATIENT
  Age: 82 Year
  Sex: Female

DRUGS (13)
  1. REVLIMID [Suspect]
     Indication: MULTIPLE MYELOMA
     Dosage: 10 MG, X 21 DAYS, ORAL
     Route: 048
     Dates: start: 20060919, end: 20061010
  2. REVLIMID [Suspect]
     Dosage: 10 MG QOD, ORAL
     Route: 048
     Dates: start: 20061219
  3. DECADRON [Suspect]
     Indication: DRUG USE FOR UNKNOWN INDICATION
  4. MICARDIS HCTZ (MICARDIS HCT) [Concomitant]
  5. FERROUS SULFATE TAB [Concomitant]
  6. B12 (CYANOCOBALAMIN) [Concomitant]
  7. ARANESP [Concomitant]
  8. COUMADIN [Concomitant]
  9. CALCIUM WITH VITAMIN D [Concomitant]
  10. TYLENOL [Concomitant]
  11. IMODIUM [Concomitant]
  12. TYLENOL W/ CODEINE NO. 3 [Concomitant]
  13. HYDROCODONE BITARTRATE [Concomitant]

REACTIONS (6)
  - ANOVULVAR FISTULA [None]
  - ASTHENIA [None]
  - DIVERTICULUM [None]
  - NEUTROPENIA [None]
  - THROMBOCYTOPENIA [None]
  - VAGINAL HAEMORRHAGE [None]
